FAERS Safety Report 6543398-0 (Version None)
Quarter: 2010Q1

REPORT INFORMATION
  Report Type: 
  Country: None (occurrence: None)
  Receive Date: 20100120
  Receipt Date: 20100113
  Transmission Date: 20100710
  Serious: No
  Sender: FDA-Public Use
  Company Number: US-B.I. PHARMACEUTICALS,INC./RIDGEFIELD-2010-BP-00600BP

PATIENT
  Age: 3 Year
  Sex: Female

DRUGS (1)
  1. FLOMAX [Suspect]
     Dosage: OPENS CAPSULE AND MEASURES OUT HALF OF GRANULES
     Route: 048

REACTIONS (1)
  - WRONG TECHNIQUE IN DRUG USAGE PROCESS [None]
